FAERS Safety Report 7998944 (Version 1)
Quarter: 2020Q3

REPORT INFORMATION
  Report Type: Report from Study
  Country: US (occurrence: US)
  Receive Date: 20110621
  Receipt Date: 20110621
  Transmission Date: 20201104
  Serious: Yes (Death, Hospitalization)
  Sender: FDA-Public Use
  Company Number: US-ROCHE-782856

PATIENT
  Age: 35 Year

DRUGS (2)
  1. BEVACIZUMAB. [Suspect]
     Active Substance: BEVACIZUMAB
     Dosage: 90?30 MIN ON DAY 1 AND 15
     Route: 042
     Dates: start: 20100714
  2. CEDIRANIB. [Suspect]
     Active Substance: CEDIRANIB
     Dosage: ON DAY 1 AND 21
     Route: 048
     Dates: start: 20100714

REACTIONS (1)
  - Dyspnoea [Fatal]

NARRATIVE: CASE EVENT DATE: 20100810
